FAERS Safety Report 18312653 (Version 8)
Quarter: 2022Q1

REPORT INFORMATION
  Report Type: Spontaneous
  Country: US (occurrence: US)
  Receive Date: 20200925
  Receipt Date: 20220322
  Transmission Date: 20220423
  Serious: No
  Sender: FDA-Public Use
  Company Number: US-PFIZER INC-2020363792

PATIENT
  Age: 11 Year
  Sex: Female
  Weight: 49.9 kg

DRUGS (3)
  1. GENOTROPIN [Suspect]
     Active Substance: SOMATROPIN
     Indication: Growth hormone deficiency
     Dosage: UNK (MAYBE 2.4, 2.5 OR 2.7MG SIX OR SEVEN DAYS A WEEK)
     Dates: start: 202002
  2. GENOTROPIN [Suspect]
     Active Substance: SOMATROPIN
     Dosage: UNK (MAYBE 2.4, 2.5 OR 2.7MG SIX OR SEVEN DAYS A WEEK)
     Dates: start: 202002
  3. GENOTROPIN [Suspect]
     Active Substance: SOMATROPIN
     Indication: Growth hormone deficiency
     Dosage: UNK (MAYBE 2.4, 2.5 OR 2.7MG SIX OR SEVEN DAYS A WEEK. SHE IS NOT SURE. SHE MAY TAKE A DAY OFF)

REACTIONS (5)
  - Drug dose omission by device [Unknown]
  - Wrong technique in device usage process [Unknown]
  - Intentional product misuse [Unknown]
  - Device issue [Unknown]
  - Device leakage [Unknown]

NARRATIVE: CASE EVENT DATE: 20200101
